FAERS Safety Report 18558592 (Version 1)
Quarter: 2020Q4

REPORT INFORMATION
  Report Type: Spontaneous
  Country: US (occurrence: US)
  Receive Date: 20201125
  Receipt Date: 20201125
  Transmission Date: 20210114
  Serious: Yes (Hospitalization)
  Sender: FDA-Public Use
  Company Number: None

PATIENT
  Age: 27 Month
  Sex: Male

DRUGS (1)
  1. TOBRAMYCIN (56AMPS/28DAY) 300MG/5ML LUPIN PHARMACEUTICALS [Suspect]
     Active Substance: TOBRAMYCIN
     Indication: RESPIRATORY TRACT MALFORMATION
     Dosage: ?          OTHER DOSE:1 AMPULE;OTHER ROUTE:INHALED?
     Route: 055
     Dates: start: 20200902

REACTIONS (2)
  - Condition aggravated [None]
  - Liquid product physical issue [None]

NARRATIVE: CASE EVENT DATE: 202010
